FAERS Safety Report 5447213-8 (Version None)
Quarter: 2007Q3

REPORT INFORMATION
  Report Type: 
  Country: None (occurrence: None)
  Receive Date: 20070910
  Receipt Date: 20070905
  Transmission Date: 20080115
  Serious: Yes (Disabling)
  Sender: FDA-Public Use
  Company Number: HQWYE016905SEP07

PATIENT
  Age: 89 Year
  Sex: Female

DRUGS (25)
  1. AMIODARONE [Suspect]
     Indication: ATRIAL FIBRILLATION
     Route: 048
     Dates: start: 20070429, end: 20070501
  2. AMIODARONE [Suspect]
     Indication: TACHYCARDIA
  3. CLOPIDOGREL [Concomitant]
     Indication: MYOCARDIAL ISCHAEMIA
     Route: 048
     Dates: end: 20070430
  4. CODEINE PHOSPHATE AND ACETAMINOPHEN [Concomitant]
     Indication: PAIN
     Dosage: DOSE AND FREQUENCY NOT SPECIFIED
     Route: 065
  5. CODEINE SUL TAB [Concomitant]
     Indication: COUGH
     Dosage: 15 MG AS NEEDED
     Route: 048
     Dates: start: 20070426
  6. DOXYCYCLINE [Concomitant]
     Indication: CHRONIC OBSTRUCTIVE PULMONARY DISEASE
     Dosage: 100 MG, FREQUENCY NOT SPECIFIED
     Route: 048
     Dates: start: 20070425, end: 20070502
  7. ENOXAPARIN SODIUM [Concomitant]
     Route: 058
     Dates: start: 20070427, end: 20070501
  8. FRUSEMIDE [Concomitant]
     Indication: MYOCARDIAL ISCHAEMIA
     Route: 048
  9. GLYCERYL TRINITRATE [Concomitant]
     Indication: MYOCARDIAL ISCHAEMIA
     Dosage: DOSE AND FREQUENCY NOT SPECIFIED
     Route: 060
  10. ISOSORBIDE MONONITRATE [Concomitant]
     Indication: MYOCARDIAL ISCHAEMIA
     Route: 048
  11. LACRI-LUBE [Concomitant]
     Indication: DRY EYE
     Dosage: DOSE AND FREQUENCY NOT SPECIFIED
     Route: 047
  12. LANSOPRAZOLE [Concomitant]
     Route: 048
     Dates: end: 20070503
  13. MIXTARD HUMAN 70/30 [Concomitant]
     Indication: DIABETES MELLITUS
     Dosage: DOSE AND FREQUENCY NOT SPECIFIED
     Route: 058
  14. PREDNISOLONE [Concomitant]
     Indication: CHRONIC OBSTRUCTIVE PULMONARY DISEASE
     Dosage: 30 MG, FREQUENCY NOT SPECIFIED
     Route: 048
     Dates: start: 20070425, end: 20070502
  15. QUININE [Concomitant]
     Indication: MUSCLE SPASMS
     Dosage: 200 MG, FREQUENCY NOT SPECIFIED
     Route: 048
  16. RAMIPRIL [Concomitant]
     Indication: HYPERTENSION
     Route: 048
     Dates: end: 20070428
  17. RAMIPRIL [Concomitant]
     Indication: MYOCARDIAL ISCHAEMIA
  18. SALBUTAMOL [Concomitant]
     Indication: CHRONIC OBSTRUCTIVE PULMONARY DISEASE
     Route: 055
  19. SERETIDE [Concomitant]
     Indication: CHRONIC OBSTRUCTIVE PULMONARY DISEASE
     Dosage: 2 UNIT EVERY 1 DAY
     Route: 055
  20. SIMVASTATIN [Concomitant]
     Indication: MYOCARDIAL ISCHAEMIA
     Route: 048
  21. TIOTROPIUM BROMIDE [Concomitant]
     Indication: CHRONIC OBSTRUCTIVE PULMONARY DISEASE
     Dosage: 18 MCG ONCE DAILY
     Route: 055
  22. TRAVOPROST [Concomitant]
     Indication: GLAUCOMA
     Dosage: DOSE AND FREQUENCY NOT SPECIFIED
     Route: 047
  23. VISCOTEARS [Concomitant]
     Indication: DRY EYE
     Route: 047
  24. WARFARIN SODIUM [Concomitant]
     Indication: ATRIAL FIBRILLATION
     Dosage: DOSE AND FREQUENCY NOT SPECIFIED
     Route: 048
     Dates: start: 20070430
  25. ASPIRIN [Concomitant]
     Indication: MYOCARDIAL ISCHAEMIA
     Route: 048
     Dates: end: 20070502

REACTIONS (2)
  - DERMATITIS EXFOLIATIVE [None]
  - MOUTH ULCERATION [None]
